FAERS Safety Report 9021128 (Version 1)
Quarter: 2013Q1

REPORT INFORMATION
  Report Type: Spontaneous
  Country: US (occurrence: US)
  Receive Date: 20130119
  Receipt Date: 20130119
  Transmission Date: 20140127
  Serious: No
  Sender: FDA-Public Use
  Company Number: US-ALLERGAN-1204030US

PATIENT
  Age: 59 None
  Sex: Male
  Weight: 68.48 kg

DRUGS (4)
  1. BOTOX? [Suspect]
     Indication: MIGRAINE
     Dosage: 155 UNITS, SINGLE
     Route: 030
     Dates: start: 20120312, end: 20120312
  2. FROVA [Concomitant]
     Indication: MIGRAINE
     Dosage: 2 TABS AT ONSET OF HEADACHE
  3. PROPRANOL [Concomitant]
     Indication: MIGRAINE PROPHYLAXIS
     Dosage: 80 MG, 1 QD
  4. TREXIMET [Concomitant]
     Indication: MIGRAINE
     Dosage: 80-500 MG 1 PRN

REACTIONS (1)
  - Insomnia [Not Recovered/Not Resolved]
